FAERS Safety Report 4875178-6 (Version None)
Quarter: 2006Q1

REPORT INFORMATION
  Report Type: 
  Country: None (occurrence: None)
  Receive Date: 20060109
  Receipt Date: 20060104
  Transmission Date: 20060701
  Serious: Yes (Other)
  Sender: FDA-Public Use
  Company Number: PHNU2006DE00452

PATIENT
  Sex: Male

DRUGS (2)
  1. DIOVAN [Suspect]
     Indication: HYPERTENSION
     Dosage: 80 MG, UNK
     Dates: start: 20000101
  2. CARMEN [Concomitant]
     Dosage: 10 MG/D
     Dates: start: 20030101

REACTIONS (4)
  - ARRHYTHMIA [None]
  - HYPERALDOSTERONISM [None]
  - HYPOKALAEMIA [None]
  - MUSCULAR WEAKNESS [None]
